FAERS Safety Report 9495664 (Version 3)
Quarter: 2013Q4

REPORT INFORMATION
  Report Type: Report from Study
  Country: US (occurrence: US)
  Receive Date: 20130903
  Receipt Date: 20131011
  Transmission Date: 20140711
  Serious: Yes (Life-Threatening, Hospitalization)
  Sender: FDA-Public Use
  Company Number: US-PFIZER INC-2013251096

PATIENT
  Age: 66 Year
  Sex: Female
  Weight: 88 kg

DRUGS (1)
  1. TOFACITINIB CITRATE [Suspect]
     Indication: RHEUMATOID ARTHRITIS
     Dosage: 10 MG, BID
     Route: 048
     Dates: start: 20111003, end: 20130816

REACTIONS (2)
  - Gallbladder cancer [Not Recovered/Not Resolved]
  - Cholelithiasis [Recovered/Resolved]
